FAERS Safety Report 16322957 (Version 1)
Quarter: 2019Q2

REPORT INFORMATION
  Report Type: Spontaneous
  Country: US (occurrence: US)
  Receive Date: 20190517
  Receipt Date: 20190517
  Transmission Date: 20190711
  Serious: No
  Sender: FDA-Public Use
  Company Number: US-LUPIN PHARMACEUTICALS INC.-2019-02295

PATIENT
  Sex: Male

DRUGS (1)
  1. TESTOSTERONE. [Suspect]
     Active Substance: TESTOSTERONE
     Indication: ELECTROCARDIOGRAM QT PROLONGED
     Dosage: 100 MILLIGRAM, QD
     Route: 062

REACTIONS (2)
  - Rash [Unknown]
  - Off label use [Unknown]
